FAERS Safety Report 9327867 (Version 2)
Quarter: 2013Q4

REPORT INFORMATION
  Report Type: Spontaneous
  Country: US (occurrence: US)
  Receive Date: 20130604
  Receipt Date: 20131009
  Transmission Date: 20140711
  Serious: No
  Sender: FDA-Public Use
  Company Number: US-PFIZER INC-2013165725

PATIENT
  Age: 63 Year
  Sex: Male

DRUGS (1)
  1. XALKORI [Suspect]
     Indication: GASTRIC CANCER
     Dosage: 250 MG, 2X/DAY
     Route: 048
     Dates: start: 20130509

REACTIONS (3)
  - Off label use [Unknown]
  - Nausea [Unknown]
  - Malaise [Unknown]
